FAERS Safety Report 10561768 (Version 3)
Quarter: 2015Q4

REPORT INFORMATION
  Report Type: Spontaneous
  Country: US (occurrence: US)
  Receive Date: 20141103
  Receipt Date: 20151224
  Transmission Date: 20160304
  Serious: Yes (Hospitalization, Other)
  Sender: FDA-Public Use
  Company Number: US-AMGEN INC.-USASL2014084158

PATIENT
  Age: 61 Year
  Sex: Female

DRUGS (11)
  1. B12                                /00056201/ [Concomitant]
  2. GABAPENTIN. [Concomitant]
     Active Substance: GABAPENTIN
  3. MTV [Concomitant]
  4. DICLOFENAC [Concomitant]
     Active Substance: DICLOFENAC
  5. PROBIOTIC                          /06395501/ [Concomitant]
     Active Substance: BIFIDOBACTERIUM ANIMALIS SUBSP. LACTIS
  6. VASOTEC [Concomitant]
     Active Substance: ENALAPRIL MALEATE
  7. IBUPROFEN. [Concomitant]
     Active Substance: IBUPROFEN
  8. FISH OIL [Concomitant]
     Active Substance: FISH OIL
  9. PRILOSEC [Concomitant]
     Active Substance: OMEPRAZOLE MAGNESIUM
  10. ENBREL [Suspect]
     Active Substance: ETANERCEPT
     Indication: RHEUMATOID ARTHRITIS
     Dosage: UNK
     Route: 065
     Dates: start: 20130507
  11. METOPROLOL [Concomitant]
     Active Substance: METOPROLOL

REACTIONS (6)
  - Decreased appetite [Unknown]
  - Bronchitis [Unknown]
  - Diarrhoea [Unknown]
  - Muscle spasms [Unknown]
  - Pain [Unknown]
  - Weight decreased [Unknown]

NARRATIVE: CASE EVENT DATE: 2013
